FAERS Safety Report 7059575-9 (Version None)
Quarter: 2010Q4

REPORT INFORMATION
  Report Type: 
  Country: None (occurrence: None)
  Receive Date: 20101025
  Receipt Date: 20101015
  Transmission Date: 20110411
  Serious: Yes (Hospitalization)
  Sender: FDA-Public Use
  Company Number: JP-ASTRAZENECA-2010SE48257

PATIENT
  Age: 33 Year
  Sex: Female

DRUGS (5)
  1. SYMBICORT [Suspect]
     Indication: ASTHMA
     Dosage: 1 DF
     Route: 055
     Dates: start: 20100612, end: 20100928
  2. PRANLUKAST [Concomitant]
     Route: 048
     Dates: start: 20100612
  3. RESPLEN [Concomitant]
     Route: 048
     Dates: start: 20100612, end: 20100809
  4. MUCOASTOMARI [Concomitant]
     Route: 048
     Dates: start: 20100612, end: 20100809
  5. SAIBOKU-TO [Concomitant]
     Route: 048
     Dates: start: 20100612, end: 20100809

REACTIONS (1)
  - DYSPNOEA [None]
